FAERS Safety Report 4498866-2 (Version None)
Quarter: 2004Q4

REPORT INFORMATION
  Report Type: 
  Country: None (occurrence: None)
  Receive Date: 20041110
  Receipt Date: 20041110
  Transmission Date: 20050328
  Serious: No
  Sender: FDA-Public Use
  Company Number: None

PATIENT
  Age: 68 Year
  Sex: Male

DRUGS (1)
  1. GATIFLOXACIN [Suspect]
     Indication: PNEUMONIA
     Dosage: 400 MG DAILY
     Dates: start: 20040909, end: 20040923

REACTIONS (3)
  - BLOOD PRESSURE DECREASED [None]
  - DIALYSIS [None]
  - RENAL FAILURE ACUTE [None]
